FAERS Safety Report 25358531 (Version 2)
Quarter: 2025Q4

REPORT INFORMATION
  Report Type: Spontaneous
  Country: US (occurrence: US)
  Receive Date: 20250526
  Receipt Date: 20251114
  Transmission Date: 20260117
  Serious: No
  Sender: PIRAMAL
  Company Number: US-PCCINC-2025-PPL-000308

PATIENT

DRUGS (1)
  1. GABLOFEN [Suspect]
     Active Substance: BACLOFEN
     Indication: Product used for unknown indication
     Dosage: 552.9 MICROGRAM, QD
     Route: 037

REACTIONS (1)
  - Muscle spasticity [Not Recovered/Not Resolved]
